FAERS Safety Report 21353475 (Version 2)
Quarter: 2022Q4

REPORT INFORMATION
  Report Type: Spontaneous
  Country: AU (occurrence: AU)
  Receive Date: 20220920
  Receipt Date: 20221031
  Transmission Date: 20230112
  Serious: Yes (Death, Other)
  Sender: FDA-Public Use
  Company Number: None

PATIENT
  Age: 30 Year
  Sex: Male

DRUGS (3)
  1. ADALIMUMAB [Suspect]
     Active Substance: ADALIMUMAB
     Indication: Immunodeficiency common variable
     Dosage: UNKNOWN
     Route: 065
     Dates: start: 2021
  2. PREDNISOLONE SODIUM PHOSPHATE [Suspect]
     Active Substance: PREDNISOLONE SODIUM PHOSPHATE
     Indication: Immunodeficiency common variable
     Dosage: UNKNOWN
     Route: 065
     Dates: start: 2017, end: 2019
  3. RITUXIMAB [Suspect]
     Active Substance: RITUXIMAB
     Indication: Immunodeficiency common variable
     Dosage: UNKNOWN
     Route: 065
     Dates: start: 2017, end: 2019

REACTIONS (6)
  - Cytomegalovirus enteritis [Fatal]
  - Cytomegalovirus infection reactivation [Fatal]
  - Pneumonia cytomegaloviral [Fatal]
  - Cytomegalovirus infection [Recovering/Resolving]
  - Disease recurrence [Unknown]
  - Off label use [Unknown]
